FAERS Safety Report 7372967-3 (Version None)
Quarter: 2011Q1

REPORT INFORMATION
  Report Type: 
  Country: None (occurrence: None)
  Receive Date: 20110324
  Receipt Date: 20110315
  Transmission Date: 20110831
  Serious: No
  Sender: FDA-Public Use
  Company Number: FR-ELI_LILLY_AND_COMPANY-FR201101005841

PATIENT
  Age: 39 Year
  Sex: Female
  Weight: 60 kg

DRUGS (4)
  1. CYMBALTA [Suspect]
     Indication: DEPRESSION
     Dosage: 60 MG, DAILY (1/D)
     Route: 048
     Dates: start: 20081001, end: 20100928
  2. CYMBALTA [Suspect]
     Dosage: 30 MG, DAILY (1/D)
     Route: 048
     Dates: start: 20100929
  3. LYSANXIA [Concomitant]
     Indication: ANXIETY
     Dosage: 10 MG, AS NEEDED
     Route: 048
     Dates: start: 20080501
  4. LEVOTHYROX [Concomitant]
     Indication: AUTOIMMUNE THYROIDITIS
     Dosage: 87.5 D/F, UNK
     Route: 048
     Dates: start: 20050101

REACTIONS (3)
  - ALANINE AMINOTRANSFERASE INCREASED [None]
  - ASPARTATE AMINOTRANSFERASE INCREASED [None]
  - BLOOD BILIRUBIN INCREASED [None]
